FAERS Safety Report 6265967-8 (Version None)
Quarter: 2009Q3

REPORT INFORMATION
  Report Type: 
  Country: None (occurrence: None)
  Receive Date: 20090708
  Receipt Date: 20090708
  Transmission Date: 20100115
  Serious: Yes (Other)
  Sender: FDA-Public Use
  Company Number: None

PATIENT
  Sex: Female

DRUGS (1)
  1. CRESTOR [Suspect]
     Indication: HYPERCHOLESTEROLAEMIA
     Dosage: 5MG ONCE DAILY PO
     Route: 048
     Dates: start: 20090421, end: 20090701

REACTIONS (3)
  - ARTHRALGIA [None]
  - ERYTHEMA [None]
  - MYALGIA [None]
